FAERS Safety Report 6751970-8 (Version None)
Quarter: 2010Q2

REPORT INFORMATION
  Report Type: 
  Country: None (occurrence: None)
  Receive Date: 20100602
  Receipt Date: 20100523
  Transmission Date: 20101027
  Serious: Yes (Other)
  Sender: FDA-Public Use
  Company Number: ES-PFIZER INC-2010065359

PATIENT
  Age: 55 Year
  Sex: Male

DRUGS (9)
  1. ATORVASTATIN CALCIUM [Suspect]
     Dosage: 20 MG, 1X/DAY
     Dates: start: 20100305, end: 20100422
  2. EUCREAS [Suspect]
     Dosage: UNK MG, 2X/DAY
     Dates: start: 20100304, end: 20100422
  3. MANIDIPINE HYDROCHLORIDE [Concomitant]
     Dosage: 10 MG, UNK
  4. VALSARTAN [Concomitant]
     Dosage: 320 MG, UNK
  5. HIDROSALURETIL [Concomitant]
  6. OMEPRAZOLE [Concomitant]
  7. TRIFLUSAL [Concomitant]
     Dosage: UNK
  8. ADIRO [Concomitant]
     Dosage: 100 MG, UNK
  9. GLICLAZIDE [Concomitant]
     Dosage: 30 MG, UNK

REACTIONS (1)
  - LEUKOCYTOCLASTIC VASCULITIS [None]
